FAERS Safety Report 5894107-X (Version None)
Quarter: 2008Q3

REPORT INFORMATION
  Report Type: 
  Country: None (occurrence: None)
  Receive Date: 20080923
  Receipt Date: 20080103
  Transmission Date: 20090109
  Serious: No
  Sender: FDA-Public Use
  Company Number: US-ASTRAZENECA-2008UW00246

PATIENT
  Age: 402 Month
  Sex: Male

DRUGS (2)
  1. SEROQUEL [Suspect]
     Route: 048
     Dates: start: 20060901
  2. TRILEPTAL [Concomitant]

REACTIONS (2)
  - FEELING ABNORMAL [None]
  - SLUGGISHNESS [None]
